FAERS Safety Report 15367944 (Version 1)
Quarter: 2018Q3

REPORT INFORMATION
  Report Type: Spontaneous
  Country: US (occurrence: US)
  Receive Date: 20180910
  Receipt Date: 20180910
  Transmission Date: 20181010
  Serious: Yes (Other)
  Sender: FDA-Public Use
  Company Number: US-SA-2018SA246375

PATIENT
  Age: 42 Year
  Sex: Female
  Weight: 90.7 kg

DRUGS (6)
  1. TAXOTERE [Suspect]
     Active Substance: DOCETAXEL
     Dosage: 100 MG EVERY TWO WEEKS
     Route: 042
     Dates: start: 20060321, end: 20060321
  2. DOXIL [DOXYCYCLINE HYDROCHLORIDE] [Concomitant]
  3. ATENOLOL. [Concomitant]
     Active Substance: ATENOLOL
  4. ADRIAMYCIN [Concomitant]
     Active Substance: DOXORUBICIN HYDROCHLORIDE
     Dosage: 120 MG
  5. TAXOTERE [Suspect]
     Active Substance: DOCETAXEL
     Indication: BREAST CANCER
     Dosage: 100 MG EVERY TWO WEEKS
     Route: 042
     Dates: start: 20060117, end: 20060117
  6. CYCLOPHOSPHAMIDE. [Concomitant]
     Active Substance: CYCLOPHOSPHAMIDE
     Dosage: 1.2 MG

REACTIONS (1)
  - Alopecia [Recovering/Resolving]
